FAERS Safety Report 4913269-1 (Version None)
Quarter: 2006Q1

REPORT INFORMATION
  Report Type: 
  Country: None (occurrence: None)
  Receive Date: 20060215
  Receipt Date: 20050923
  Transmission Date: 20060701
  Serious: Yes (Hospitalization)
  Sender: FDA-Public Use
  Company Number: US-MERCK-0509USA03970

PATIENT
  Age: 47 Year
  Sex: Male
  Weight: 95 kg

DRUGS (9)
  1. VIOXX [Suspect]
     Indication: RHEUMATOID ARTHRITIS
     Route: 048
     Dates: start: 20030101, end: 20040901
  2. PREDNISONE [Concomitant]
     Indication: SYSTEMIC LUPUS ERYTHEMATOSUS
     Route: 065
  3. PLAQUENIL [Concomitant]
     Indication: SYSTEMIC LUPUS ERYTHEMATOSUS
     Route: 065
  4. TOPROL-XL [Concomitant]
     Indication: HYPERTENSION
     Route: 065
     Dates: start: 19960201
  5. TOPROL-XL [Concomitant]
     Indication: MYOCARDIAL INFARCTION
     Route: 065
     Dates: start: 19960201
  6. LIPITOR [Concomitant]
     Indication: BLOOD CHOLESTEROL INCREASED
     Route: 065
     Dates: start: 19960101
  7. PROZAC [Concomitant]
     Indication: DEPRESSION
     Route: 065
     Dates: start: 19900101
  8. ARAVA [Concomitant]
     Indication: ARTHRITIS
     Route: 065
  9. ASPIRIN [Concomitant]
     Route: 065
     Dates: start: 19990301, end: 20040101

REACTIONS (8)
  - CHEST DISCOMFORT [None]
  - CHEST PAIN [None]
  - COUGH [None]
  - DEPRESSION [None]
  - EMPHYSEMA [None]
  - MYOCARDIAL ISCHAEMIA [None]
  - SLEEP APNOEA SYNDROME [None]
  - TROPONIN INCREASED [None]
